FAERS Safety Report 20083179 (Version 2)
Quarter: 2021Q4

REPORT INFORMATION
  Report Type: Spontaneous
  Country: NL (occurrence: NL)
  Receive Date: 20211117
  Receipt Date: 20211119
  Transmission Date: 20220303
  Serious: Yes (Death, Life-Threatening, Hospitalization)
  Sender: FDA-Public Use
  Company Number: None

PATIENT
  Age: 68 Year
  Sex: Female
  Weight: 78 kg

DRUGS (6)
  1. CAPECITABINE [Suspect]
     Active Substance: CAPECITABINE
     Indication: Colon cancer
     Dosage: 1800 MILLIGRAM, BID (2 DD 1800 MG)
     Dates: start: 20210622, end: 20210702
  2. OXALIPLATIN [Suspect]
     Active Substance: OXALIPLATIN
     Indication: Colon cancer
     Dosage: 190 MILLIGRAM
     Dates: start: 20210622, end: 20210702
  3. LEVOTHYROXINE [Concomitant]
     Active Substance: LEVOTHYROXINE
     Dosage: 125 MICROGRAM, QD, 1 X PER DAG 1 STUK
  4. LORAZEPAM [Concomitant]
     Active Substance: LORAZEPAM
     Dosage: 2 DOSAGE FORM
  5. POLYETHYLENE GLYCOLS [Concomitant]
     Active Substance: POLYETHYLENE GLYCOLS
     Dosage: 1 TOT 2 X PER DAG 1 STUK
  6. ESOMEPRAZOL                        /01479301/ [Concomitant]
     Dosage: 40 MILLIGRAM, QD, 1 X PER DAG 40 MILLIGRAM

REACTIONS (1)
  - Stevens-Johnson syndrome [Fatal]

NARRATIVE: CASE EVENT DATE: 20210701
